FAERS Safety Report 10441159 (Version 1)
Quarter: 2014Q3

REPORT INFORMATION
  Report Type: Spontaneous
  Country: US (occurrence: None)
  Receive Date: 20140908
  Receipt Date: 20140908
  Transmission Date: 20150326
  Serious: Yes (Life-Threatening, Other)
  Sender: FDA-Public Use
  Company Number: None

PATIENT
  Age: 75 Year
  Sex: Female
  Weight: 73.03 kg

DRUGS (1)
  1. NITROFURANTOIN. [Suspect]
     Active Substance: NITROFURANTOIN
     Indication: CYSTITIS
     Dosage: 100 MG?2 PILLS -A- DAY?2 PILLS A DAY?BY MOUTH?TOOK 3 DAYS?TOOK 7 PILLS HAD 14 PILLS
     Route: 048
     Dates: start: 20140815, end: 20140817

REACTIONS (2)
  - Dyspnoea [None]
  - Pain [None]

NARRATIVE: CASE EVENT DATE: 20140815
